FAERS Safety Report 4984481-0 (Version None)
Quarter: 2006Q2

REPORT INFORMATION
  Report Type: 
  Country: None (occurrence: None)
  Receive Date: 20060427
  Receipt Date: 20060420
  Transmission Date: 20061013
  Serious: Yes (Hospitalization)
  Sender: FDA-Public Use
  Company Number: BE-GLAXOSMITHKLINE-B0421444A

PATIENT
  Sex: Female

DRUGS (1)
  1. ZINNAT [Suspect]
     Indication: OTITIS MEDIA
     Dosage: 30MGK PER DAY
     Route: 048
     Dates: start: 20060227, end: 20060308

REACTIONS (3)
  - ABASIA [None]
  - ARTHRALGIA [None]
  - SERUM SICKNESS [None]
